FAERS Safety Report 16563196 (Version 3)
Quarter: 2019Q3

REPORT INFORMATION
  Report Type: Spontaneous
  Country: US (occurrence: US)
  Receive Date: 20190711
  Receipt Date: 20190812
  Transmission Date: 20191004
  Serious: No
  Sender: FDA-Public Use
  Company Number: US-ASTRAZENECA-2019SE57500

PATIENT
  Sex: Male
  Weight: 84.8 kg

DRUGS (2)
  1. BYDUREON [Suspect]
     Active Substance: EXENATIDE
     Indication: TYPE 2 DIABETES MELLITUS
     Route: 058
  2. BYDUREON [Suspect]
     Active Substance: EXENATIDE
     Indication: TYPE 1 DIABETES MELLITUS
     Route: 058

REACTIONS (8)
  - Injection site pain [Unknown]
  - Device issue [Unknown]
  - Product use in unapproved indication [Unknown]
  - Off label use [Unknown]
  - Device malfunction [Unknown]
  - Wrong technique in product usage process [Recovered/Resolved]
  - Circumstance or information capable of leading to medication error [Recovered/Resolved]
  - Intentional product misuse [Unknown]
